FAERS Safety Report 16104756 (Version 6)
Quarter: 2020Q1

REPORT INFORMATION
  Report Type: Spontaneous
  Country: US (occurrence: US)
  Receive Date: 20190322
  Receipt Date: 20200225
  Transmission Date: 20200409
  Serious: No
  Sender: FDA-Public Use
  Company Number: US-PFIZER INC-2019119032

PATIENT
  Sex: Male

DRUGS (1)
  1. TIKOSYN [Suspect]
     Active Substance: DOFETILIDE
     Indication: ATRIAL FIBRILLATION
     Dosage: UNK

REACTIONS (5)
  - Therapeutic product effect incomplete [Unknown]
  - Stress [Unknown]
  - Blood glucose decreased [Unknown]
  - Malaise [Unknown]
  - Feeling abnormal [Unknown]
